FAERS Safety Report 13228067 (Version 2)
Quarter: 2017Q1

REPORT INFORMATION
  Report Type: Spontaneous
  Country: PL (occurrence: PL)
  Receive Date: 20170213
  Receipt Date: 20170221
  Transmission Date: 20170428
  Serious: Yes (Death, Other)
  Sender: FDA-Public Use
  Company Number: PL-GILEAD-2017-0257666

PATIENT
  Age: 55 Year
  Sex: Male
  Weight: 81 kg

DRUGS (8)
  1. CYCLOSPORIN [Concomitant]
     Active Substance: CYCLOSPORINE
     Dosage: 150 MG, UNK
     Route: 048
     Dates: start: 20161016, end: 20161023
  2. PROGRAF [Concomitant]
     Active Substance: TACROLIMUS\TACROLIMUS ANHYDROUS
     Indication: IMMUNOSUPPRESSION
     Dosage: 4 MG, UNK
     Route: 048
     Dates: start: 20160812, end: 20161015
  3. TYGACIL [Concomitant]
     Active Substance: TIGECYCLINE
     Indication: CULTURE POSITIVE
     Dosage: UNK
     Route: 042
     Dates: start: 20161010, end: 20161023
  4. MIDANIUM [Concomitant]
     Active Substance: MIDAZOLAM HYDROCHLORIDE
     Dosage: UNK
     Route: 042
     Dates: start: 20161023, end: 20161024
  5. HARVONI [Suspect]
     Active Substance: LEDIPASVIR\SOFOSBUVIR
     Indication: HEPATITIS C
     Dosage: 1 DF, UNK
     Route: 048
     Dates: start: 20161006, end: 20161023
  6. VALCYTE [Concomitant]
     Active Substance: VALGANCICLOVIR HYDROCHLORIDE
     Indication: ANTIVIRAL PROPHYLAXIS
     Dosage: 900 MG, UNK
     Route: 048
     Dates: start: 20160812, end: 20161023
  7. ENCORTOLON [Concomitant]
     Indication: IMMUNOSUPPRESSION
     Dosage: 15 MG, UNK
     Route: 048
     Dates: start: 20160812, end: 20161023
  8. LEVONOR                            /00022701/ [Concomitant]
     Indication: HYPOTENSION
     Dosage: UNK
     Route: 042
     Dates: start: 20160927, end: 20161023

REACTIONS (1)
  - Osmotic demyelination syndrome [Fatal]

NARRATIVE: CASE EVENT DATE: 20161015
